FAERS Safety Report 9916456 (Version 2)
Quarter: 2014Q1

REPORT INFORMATION
  Report Type: Spontaneous
  Country: GB (occurrence: None)
  Receive Date: 20140219
  Receipt Date: 20140226
  Transmission Date: 20141002
  Serious: Yes (Other)
  Sender: FDA-Public Use
  Company Number: 1811958

PATIENT
  Age: 35 Year
  Sex: Female

DRUGS (2)
  1. METHOTREXATE [Suspect]
     Indication: PRODUCT USED FOR UNKNOWN INDICATION
     Dosage: 7.5 MG ,  MILLIGRAM (S) , UNKNOWN , SUBCUTANEOUS
     Route: 058
  2. USTEKINUMAB [Suspect]
     Indication: PSORIASIS
     Route: 058

REACTIONS (11)
  - Psoriasis [None]
  - Drug-induced liver injury [None]
  - Pleural effusion [None]
  - Haemoglobin decreased [None]
  - Mouth ulceration [None]
  - Pericardial effusion [None]
  - Lower respiratory tract infection [None]
  - Systemic lupus erythematosus [None]
  - Nausea [None]
  - Rash [None]
  - Drug ineffective [None]
